FAERS Safety Report 18709177 (Version 1)
Quarter: 2021Q1

REPORT INFORMATION
  Report Type: Spontaneous
  Country: BG (occurrence: BG)
  Receive Date: 20210106
  Receipt Date: 20210106
  Transmission Date: 20210419
  Serious: Yes (Hospitalization)
  Sender: FDA-Public Use
  Company Number: BG-DSJP-DSE-2021-100029

PATIENT
  Age: 14 Year
  Sex: Female

DRUGS (1)
  1. EDOXABAN [Suspect]
     Active Substance: EDOXABAN TOSYLATE
     Indication: DEEP VEIN THROMBOSIS
     Dosage: UNK

REACTIONS (2)
  - Deep vein thrombosis [Recovered/Resolved]
  - Product use issue [Recovered/Resolved]
